FAERS Safety Report 9641936 (Version 2)
Quarter: 2013Q4

REPORT INFORMATION
  Report Type: Spontaneous
  Country: US (occurrence: US)
  Receive Date: 20131023
  Receipt Date: 20131108
  Transmission Date: 20140711
  Serious: Yes (Other)
  Sender: FDA-Public Use
  Company Number: US-PFIZER INC-2013301956

PATIENT
  Age: 68 Year
  Sex: Female
  Weight: 60.32 kg

DRUGS (1)
  1. CELEBREX [Suspect]
     Indication: ARTHRITIS
     Dosage: 2X/DAY
     Dates: start: 1994

REACTIONS (1)
  - Arthropathy [Unknown]
